FAERS Safety Report 8805404 (Version 1)
Quarter: 2012Q4

REPORT INFORMATION
  Report Type: 
  Country: PH (occurrence: PH)
  Receive Date: 20120924
  Receipt Date: 20120924
  Transmission Date: 20130627
  Serious: Yes (Death)
  Sender: FDA-Public Use
  Company Number: PHHO2005PH16649

PATIENT
  Sex: Female

DRUGS (2)
  1. GLIVEC [Suspect]
     Indication: CHRONIC MYELOID LEUKAEMIA
     Dates: start: 20041014
  2. GLIVEC [Suspect]
     Dosage: 600 mg, QD
     Route: 048
     Dates: start: 20041029

REACTIONS (1)
  - Death [Fatal]
